FAERS Safety Report 5782013-0 (Version None)
Quarter: 2008Q2

REPORT INFORMATION
  Report Type: 
  Country: None (occurrence: None)
  Receive Date: 20080623
  Receipt Date: 20080618
  Transmission Date: 20081010
  Serious: Yes (Hospitalization)
  Sender: FDA-Public Use
  Company Number: US-ASTRAZENECA-2007UW27802

PATIENT
  Age: 534 Month
  Sex: Male
  Weight: 135.5 kg

DRUGS (18)
  1. SEROQUEL [Suspect]
     Indication: BIPOLAR II DISORDER
     Dosage: 100 MG TO 600 MG
     Route: 048
     Dates: start: 19990101
  2. SEROQUEL [Suspect]
     Indication: DEPRESSION
     Dosage: 100 MG TO 600 MG
     Route: 048
     Dates: start: 19990101
  3. ABILIFY [Concomitant]
  4. GEODON [Concomitant]
  5. HALDOL [Concomitant]
     Dates: start: 19710101
  6. RISPERDAL [Concomitant]
  7. THORAZINE [Concomitant]
     Dates: start: 19720101, end: 19980101
  8. ZYPREXA [Concomitant]
     Dates: start: 19980101, end: 20000101
  9. ELAVIL [Concomitant]
  10. DEPAKOTE [Concomitant]
  11. XANAX [Concomitant]
  12. AMBIEN [Concomitant]
  13. ROZEREM [Concomitant]
  14. ZONEGRAN [Concomitant]
  15. COGENTIN [Concomitant]
  16. LITHIUM CARBONATE [Concomitant]
  17. DEPAKOTE [Concomitant]
  18. CLOZARIL [Concomitant]

REACTIONS (8)
  - BIPOLAR DISORDER [None]
  - BLOOD CHOLESTEROL INCREASED [None]
  - BLOOD TRIGLYCERIDES INCREASED [None]
  - CHEST PAIN [None]
  - DIABETES MELLITUS [None]
  - FOOT FRACTURE [None]
  - VERTIGO [None]
  - WEIGHT INCREASED [None]
